FAERS Safety Report 15548234 (Version 1)
Quarter: 2018Q4

REPORT INFORMATION
  Report Type: Spontaneous
  Country: US (occurrence: US)
  Receive Date: 20181024
  Receipt Date: 20181024
  Transmission Date: 20190205
  Serious: No
  Sender: FDA-Public Use
  Company Number: US-SA-2018SA292803

PATIENT
  Age: 65 Year
  Sex: Male

DRUGS (2)
  1. LANTUS [Suspect]
     Active Substance: INSULIN GLARGINE
     Indication: TYPE 2 DIABETES MELLITUS
     Dosage: 30 U, QD
     Route: 065
     Dates: start: 20181002
  2. BYDUREON [Suspect]
     Active Substance: EXENATIDE
     Dosage: USES ONCE A WEEK
     Route: 065

REACTIONS (4)
  - Device leakage [Unknown]
  - Device operational issue [Unknown]
  - Blood glucose increased [Unknown]
  - Visual impairment [Unknown]
